FAERS Safety Report 9829657 (Version 2)
Quarter: 2014Q1

REPORT INFORMATION
  Report Type: Spontaneous
  Country: US (occurrence: US)
  Receive Date: 20140120
  Receipt Date: 20140120
  Transmission Date: 20141002
  Serious: Yes (Hospitalization, Other)
  Sender: FDA-Public Use
  Company Number: US-BEH-2013038330

PATIENT
  Sex: Female
  Weight: 22 kg

DRUGS (11)
  1. PRIVIGEN [Suspect]
     Indication: SPINOCEREBELLAR DISORDER
     Dosage: 2-4 HOURS AS TOLERATED
     Route: 042
  2. ACETAMINOPHEN [Concomitant]
  3. DIPHENHYDRAMINE [Concomitant]
  4. HEPARIN [Concomitant]
  5. LIDOCAINE/PRILOCAINE [Concomitant]
  6. EPI-PEN [Concomitant]
  7. RANITIDINE [Concomitant]
  8. FLOVENT [Concomitant]
  9. ALBUTEROL [Concomitant]
  10. SULFAMETHOXAZOLE [Concomitant]
  11. SODIUM CHLORIDE [Concomitant]

REACTIONS (4)
  - Pneumonia aspiration [Unknown]
  - Pulmonary oedema [Unknown]
  - Gastrointestinal disorder [Unknown]
  - Dyspnoea [Unknown]
